FAERS Safety Report 4390515-7 (Version None)
Quarter: 2004Q2

REPORT INFORMATION
  Report Type: 
  Country: None (occurrence: None)
  Receive Date: 20040630
  Receipt Date: 20040617
  Transmission Date: 20050107
  Serious: Yes (Other)
  Sender: FDA-Public Use
  Company Number: US-JNJFOC-20040605029

PATIENT
  Age: 78 Year
  Sex: Male
  Weight: 90.7194 kg

DRUGS (5)
  1. DITROPAN XL (OXYBUTYNIN HYDROCHLORIDE) SUSTAINED RELEASE TABLETS [Suspect]
     Indication: HYPERTONIC BLADDER
     Dosage: 20 MG, 1 IN 1 DAY, ORAL
     Route: 048
     Dates: start: 20020601, end: 20030601
  2. PLAVIX [Concomitant]
  3. DIABETA (GLIBENCLAMIDE0 [Concomitant]
  4. ZYLOPRIM [Concomitant]
  5. LISINOPRIL [Concomitant]

REACTIONS (3)
  - CEREBROVASCULAR ACCIDENT [None]
  - DRUG INEFFECTIVE [None]
  - PROSTATIC OPERATION [None]
